FAERS Safety Report 11089514 (Version 3)
Quarter: 2015Q4

REPORT INFORMATION
  Report Type: Spontaneous
  Country: US (occurrence: US)
  Receive Date: 20150505
  Receipt Date: 20151007
  Transmission Date: 20160304
  Serious: Yes (Hospitalization)
  Sender: FDA-Public Use
  Company Number: US-BAYER-2015-183461

PATIENT
  Age: 24 Year
  Sex: Female
  Weight: 63 kg

DRUGS (7)
  1. FLEXERIL [Concomitant]
     Active Substance: CYCLOBENZAPRINE HYDROCHLORIDE
     Indication: MUSCLE SPASMS
     Dosage: UNK
     Dates: start: 2005
  2. ACETAMINOPHEN. [Concomitant]
     Active Substance: ACETAMINOPHEN
     Dosage: UNK UNK, PRN
     Route: 048
  3. VICODIN [Concomitant]
     Active Substance: ACETAMINOPHEN\HYDROCODONE BITARTRATE
     Dosage: 5 MG, PRN
     Route: 048
  4. LEXAPRO [Concomitant]
     Active Substance: ESCITALOPRAM OXALATE
     Dosage: 10 MG, EVERY MORNING
     Route: 048
  5. PROVENTIL [Concomitant]
     Active Substance: ALBUTEROL
     Dosage: 2 PUFFS
     Route: 045
  6. MIRENA [Suspect]
     Active Substance: LEVONORGESTREL
     Indication: CONTRACEPTION
     Dosage: 20 MCG/24HR, CONT
     Route: 015
     Dates: start: 20110703, end: 20130920
  7. ALBUTEROL. [Concomitant]
     Active Substance: ALBUTEROL

REACTIONS (10)
  - Abdominal pain upper [None]
  - Scar [None]
  - Mobility decreased [None]
  - Uterine perforation [None]
  - Abdominal pain [None]
  - Pelvic pain [None]
  - Device dislocation [None]
  - Injury [None]
  - Activities of daily living impaired [None]
  - Device issue [None]

NARRATIVE: CASE EVENT DATE: 201308
